FAERS Safety Report 19498110 (Version 2)
Quarter: 2023Q1

REPORT INFORMATION
  Report Type: Spontaneous
  Country: DE (occurrence: DE)
  Receive Date: 20210706
  Receipt Date: 20230130
  Transmission Date: 20230418
  Serious: Yes (Hospitalization)
  Sender: FDA-Public Use
  Company Number: DE-ADRED-06668-02

PATIENT
  Age: 33 Year
  Sex: Female
  Weight: 50 kg

DRUGS (14)
  1. FLUOROURACIL [Suspect]
     Active Substance: FLUOROURACIL
     Indication: Product used for unknown indication
     Dosage: ACCORDING TO THE SCHEME
     Route: 042
  2. IRINOTECAN [Suspect]
     Active Substance: IRINOTECAN
     Indication: Product used for unknown indication
     Dosage: ACCORDING TO THE SCHEME
     Route: 042
  3. BUPRENORPHINE [Concomitant]
     Active Substance: BUPRENORPHINE
     Indication: Product used for unknown indication
     Dosage: 0.2 MG, AS NEEDED
     Route: 060
  4. ELECTROLYTES NOS\MINERALS [Concomitant]
     Active Substance: ELECTROLYTES NOS\MINERALS
     Indication: Product used for unknown indication
     Dosage: ACCORDING TO THE SCHEME
     Route: 042
  5. METAMIZOL [Concomitant]
     Active Substance: METAMIZOLE SODIUM
     Indication: Product used for unknown indication
     Dosage: 500 MG, REQUIREMENT, DROPS
     Route: 048
  6. DEXAMETHASONE [Concomitant]
     Active Substance: DEXAMETHASONE
     Indication: Product used for unknown indication
     Dosage: 8 MILLIGRAM DAILY;  1-0-0-0
     Route: 048
  7. CLINIMIX [Concomitant]
     Active Substance: ALANINE\ARGININE\DEXTROSE\GLYCINE\HISTIDINE\ISOLEUCINE\LEUCINE\LYSINE\METHIONINE\PHENYLALANINE\PROLI
     Indication: Product used for unknown indication
     Dosage: 1 DOSAGE FORMS DAILY; 1-0-0-0, 5% G-E TWO-CHAMBER BAG 1L
     Route: 042
  8. LEUCOVORIN [Concomitant]
     Active Substance: LEUCOVORIN
     Indication: Product used for unknown indication
     Dosage: ACCORDING TO THE SCHEME
     Route: 042
  9. Olimel Peri [Concomitant]
     Indication: Product used for unknown indication
     Dosage: ACCORDING TO THE SCHEME, OLIMEL PERI 2.5% E THREE-CHAMBER PLASTIC BAG 1.5L
     Route: 042
  10. LEVOMEPROMAZINE [Concomitant]
     Active Substance: LEVOMEPROMAZINE
     Indication: Product used for unknown indication
     Dosage: 40 MG, REQUIREMENT, DROPS
     Route: 048
  11. NALOXEGOL [Concomitant]
     Active Substance: NALOXEGOL
     Indication: Product used for unknown indication
     Dosage: 25 MILLIGRAM DAILY; 1-0-0-0
     Route: 048
  12. CALCIUM CHLORIDE\POTASSIUM CHLORIDE\SODIUM ACETATE [Concomitant]
     Active Substance: CALCIUM CHLORIDE\POTASSIUM CHLORIDE\SODIUM ACETATE
     Indication: Product used for unknown indication
     Dosage: 1 DOSAGE FORMS DAILY; 1-0-0-0, RINGER ACETATE SOLUTION BERNBURG GLASS 500 ML
     Route: 042
  13. CERNEVIT [Concomitant]
     Active Substance: VITAMINS
     Indication: Product used for unknown indication
     Dosage: 1 DOSAGE FORMS DAILY; 1-0-0-0
  14. OLIMEL [Concomitant]
     Active Substance: AMINO ACIDS\DEXTROSE\SOYBEAN OIL
     Indication: Product used for unknown indication
     Dosage: OLIMEL 4.4% E 3-CHAMBER SACHET, ACCORDING TO SCHEME

REACTIONS (2)
  - Abdominal pain [Recovering/Resolving]
  - Diarrhoea [Recovering/Resolving]
